FAERS Safety Report 5634007-3 (Version None)
Quarter: 2008Q1

REPORT INFORMATION
  Report Type: 
  Country: None (occurrence: None)
  Receive Date: 20080221
  Receipt Date: 20080213
  Transmission Date: 20080703
  Serious: Yes (Hospitalization)
  Sender: FDA-Public Use
  Company Number: US-MERCK-0706USA03530

PATIENT
  Age: 78 Year
  Sex: Female

DRUGS (1)
  1. FOSAMAX [Suspect]
     Route: 048

REACTIONS (10)
  - ANKLE FRACTURE [None]
  - BASAL CELL CARCINOMA [None]
  - BREAST CANCER [None]
  - BREAST CANCER RECURRENT [None]
  - BREAST NECROSIS [None]
  - FIBROCYSTIC BREAST DISEASE [None]
  - JOINT INJURY [None]
  - PAIN IN JAW [None]
  - ROAD TRAFFIC ACCIDENT [None]
  - TOOTH LOSS [None]
